FAERS Safety Report 20482489 (Version 1)
Quarter: 2022Q1

REPORT INFORMATION
  Report Type: Report from Study
  Country: EG (occurrence: EG)
  Receive Date: 20220217
  Receipt Date: 20220217
  Transmission Date: 20220423
  Serious: Yes (Other)
  Sender: FDA-Public Use
  Company Number: EG-AMGEN-EGYSL2022025493

PATIENT
  Age: 49 Year
  Sex: Female

DRUGS (1)
  1. ADALIMUMAB [Suspect]
     Active Substance: ADALIMUMAB
     Indication: Rheumatoid arthritis
     Dosage: 40 MILLIGRAM, Q2WK
     Route: 065

REACTIONS (8)
  - Pulmonary oedema [Unknown]
  - Feeling cold [Unknown]
  - Acne [Unknown]
  - Decreased immune responsiveness [Unknown]
  - Fatigue [Unknown]
  - Asthenia [Unknown]
  - Inflammation [Not Recovered/Not Resolved]
  - Abscess [Unknown]
